FAERS Safety Report 8603554-4 (Version None)
Quarter: 2012Q3

REPORT INFORMATION
  Report Type: 
  Country: None (occurrence: None)
  Receive Date: 20120817
  Receipt Date: 20120809
  Transmission Date: 20120928
  Serious: Yes (Other)
  Sender: FDA-Public Use
  Company Number: PHHY2012US069668

PATIENT
  Age: 73 Year
  Sex: Male

DRUGS (7)
  1. GLYBURIDE [Concomitant]
     Indication: DIABETES MELLITUS
  2. MAGNESIUM HYDROXIDE TAB [Concomitant]
     Indication: DIARRHOEA
  3. BYSTOLIC [Concomitant]
     Indication: HYPERTENSION
  4. MAGNESIUM HYDROXIDE TAB [Concomitant]
     Indication: FLATULENCE
     Dosage: 2 TSP, DAILY DOSE
     Route: 048
  5. METFORMIN HYDROCHLORIDE [Concomitant]
     Indication: DIABETES MELLITUS
  6. ASPIRIN [Suspect]
     Route: 048
  7. LISINOPRIL [Concomitant]
     Indication: HYPERTENSION

REACTIONS (4)
  - MYOCARDIAL INFARCTION [None]
  - TENDERNESS [None]
  - RASH GENERALISED [None]
  - THROAT TIGHTNESS [None]
